FAERS Safety Report 5139751-2 (Version None)
Quarter: 2006Q4

REPORT INFORMATION
  Report Type: 
  Country: None (occurrence: None)
  Receive Date: 20061024
  Receipt Date: 20061013
  Transmission Date: 20070319
  Serious: Yes (Death)
  Sender: FDA-Public Use
  Company Number: GBWYE227213OCT06

PATIENT
  Sex: Male

DRUGS (2)
  1. TYGACIL [Suspect]
  2. PIPERACILLIN AND TAZOBACTAM [Suspect]

REACTIONS (2)
  - DRUG HYPERSENSITIVITY [None]
  - MULTI-ORGAN FAILURE [None]
